FAERS Safety Report 15219880 (Version 1)
Quarter: 2018Q3

REPORT INFORMATION
  Report Type: Other
  Country: CH (occurrence: CH)
  Receive Date: 20180731
  Receipt Date: 20180731
  Transmission Date: 20181010
  Serious: Yes (Hospitalization, Disabling)
  Sender: FDA-Public Use
  Company Number: CH-CHANGZHOU PHARMACEUTICAL FACTORY-2052984

PATIENT
  Age: 46 Year
  Sex: Male

DRUGS (5)
  1. HYDROCODONE [Concomitant]
     Active Substance: HYDROCODONE
     Route: 065
  2. LISINOPRIL. [Suspect]
     Active Substance: LISINOPRIL
     Route: 065
  3. ROSUVASTATIN CALCIUM. [Suspect]
     Active Substance: ROSUVASTATIN CALCIUM
     Indication: PRODUCT USED FOR UNKNOWN INDICATION
     Route: 065
  4. TICAGRELOR. [Suspect]
     Active Substance: TICAGRELOR
     Route: 065
  5. OXYCODONE [Concomitant]
     Active Substance: OXYCODONE

REACTIONS (5)
  - Drug interaction [Unknown]
  - Rhabdomyolysis [Unknown]
  - Myocardial infarction [Unknown]
  - Pain in extremity [Unknown]
  - Walking disability [Unknown]
